FAERS Safety Report 7773123-7 (Version None)
Quarter: 2011Q3

REPORT INFORMATION
  Report Type: 
  Country: None (occurrence: None)
  Receive Date: 20110922
  Receipt Date: 20110418
  Transmission Date: 20111222
  Serious: No
  Sender: FDA-Public Use
  Company Number: US-ASTRAZENECA-2007UW05821

PATIENT
  Age: 42 Year
  Sex: Female
  Weight: 81.6 kg

DRUGS (7)
  1. WELLBUTRIN [Concomitant]
     Dates: start: 20060504
  2. SYNTHROID [Concomitant]
     Dates: start: 20060504
  3. SEROQUEL [Suspect]
     Indication: SLEEP DISORDER
     Dosage: 100 MG-150 MG
     Route: 048
     Dates: start: 20021001, end: 20060101
  4. SEROQUEL [Suspect]
     Route: 048
     Dates: start: 20060504
  5. CYCLOPHOSPHAMIDE [Concomitant]
     Dates: start: 20060504
  6. ALLEGRA [Concomitant]
     Dates: start: 20060504
  7. CYMBALTA [Concomitant]
     Dates: start: 20060504

REACTIONS (3)
  - TYPE 2 DIABETES MELLITUS [None]
  - THYROID DISORDER [None]
  - HYPOTHYROIDISM [None]
